FAERS Safety Report 9451076 (Version 24)
Quarter: 2015Q4

REPORT INFORMATION
  Report Type: Report from Study
  Country: GB (occurrence: GB)
  Receive Date: 20130809
  Receipt Date: 20151020
  Transmission Date: 20160305
  Serious: Yes (Death, Hospitalization)
  Sender: FDA-Public Use
  Company Number: GB-009507513-1308GBR001219

PATIENT
  Age: 14 Year
  Sex: Male
  Weight: 42.85 kg

DRUGS (27)
  1. TEMOZOLOMIDE. [Suspect]
     Active Substance: TEMOZOLOMIDE
     Dosage: 100 MG, QD
     Route: 048
     Dates: start: 20130827, end: 20130829
  2. DEXAMETHASONE. [Suspect]
     Active Substance: DEXAMETHASONE
     Indication: BRAIN NEOPLASM MALIGNANT
     Dosage: 4 MG, BID
     Route: 048
     Dates: start: 20130614, end: 20130619
  3. DEXAMETHASONE. [Suspect]
     Active Substance: DEXAMETHASONE
     Dosage: UNK
     Route: 065
     Dates: start: 20130718
  4. AVASTIN [Suspect]
     Active Substance: BEVACIZUMAB
     Dosage: 430 MG, ONCE (1 IN 2 WEEK)
     Route: 042
     Dates: start: 20130801
  5. DEXAMETHASONE. [Suspect]
     Active Substance: DEXAMETHASONE
     Dosage: 2 MG, QD
     Route: 048
     Dates: start: 201307, end: 20130703
  6. AVASTIN [Suspect]
     Active Substance: BEVACIZUMAB
     Dosage: 450 MG, QOW (1 IN 2 WEEK)
     Route: 042
     Dates: start: 20130725
  7. ACETAMINOPHEN. [Concomitant]
     Active Substance: ACETAMINOPHEN
     Dosage: TOTAL DAILY DOSE: 6520, UNIT UNSPECIFIED
     Dates: start: 20130729, end: 20130731
  8. IBUPROFEN. [Concomitant]
     Active Substance: IBUPROFEN
  9. TEMOZOLOMIDE. [Suspect]
     Active Substance: TEMOZOLOMIDE
     Indication: BRAIN NEOPLASM MALIGNANT
     Dosage: 105 MG, 1 IN 1 D
     Route: 048
     Dates: start: 20130718, end: 20130731
  10. TEMOZOLOMIDE. [Suspect]
     Active Substance: TEMOZOLOMIDE
     Dosage: UNK
     Route: 048
     Dates: start: 20130820, end: 20130826
  11. RANITIDINE [Concomitant]
     Active Substance: RANITIDINE\RANITIDINE HYDROCHLORIDE
  12. DEXAMETHASONE. [Suspect]
     Active Substance: DEXAMETHASONE
     Dosage: 3 MG, BID
     Route: 048
     Dates: start: 20130620, end: 2013
  13. AVASTIN [Suspect]
     Active Substance: BEVACIZUMAB
     Dosage: 445 MG, QD
     Route: 042
     Dates: start: 20140604, end: 2014
  14. GAVISCON (ALGINIC ACID (+) SODIUM BICARBONATE) [Concomitant]
     Dosage: UNK
     Dates: start: 20130703, end: 201308
  15. MOVICOL [Concomitant]
     Active Substance: POLYETHYLENE GLYCOL 3350\POTASSIUM CHLORIDE\SODIUM BICARBONATE\SODIUM CHLORIDE
     Dosage: UNK
  16. TEMOZOLOMIDE. [Suspect]
     Active Substance: TEMOZOLOMIDE
     Dosage: 100 MG, 1 IN 1 D
     Route: 048
     Dates: start: 20130801, end: 20130814
  17. TEMOZOLOMIDE. [Suspect]
     Active Substance: TEMOZOLOMIDE
     Dosage: 100 MG, QD
     Route: 048
     Dates: start: 20130815, end: 20130819
  18. DEXAMETHASONE. [Suspect]
     Active Substance: DEXAMETHASONE
     Dosage: 1 MG, QD
     Route: 048
     Dates: start: 20130704, end: 20130708
  19. DEXAMETHASONE. [Suspect]
     Active Substance: DEXAMETHASONE
     Dosage: 0.5 MG, QD
     Route: 048
     Dates: start: 20130709, end: 20130717
  20. AVASTIN [Suspect]
     Active Substance: BEVACIZUMAB
     Indication: BRAIN NEOPLASM MALIGNANT
     Dosage: 450 MG, QOW (1 IN 2 WEEK)
     Route: 042
     Dates: start: 20130718, end: 20130724
  21. ORAMORPH [Concomitant]
     Active Substance: MORPHINE SULFATE
     Dosage: UNK
  22. CYCLIZINE [Concomitant]
     Active Substance: CYCLIZINE
     Dosage: UNK
     Dates: start: 201306, end: 20130724
  23. CODEINE [Concomitant]
     Active Substance: CODEINE
     Dosage: UNK
     Dates: start: 20130711
  24. AQUEOUS CREAM [Concomitant]
     Dosage: UNK
     Dates: end: 20140115
  25. TEMOZOLOMIDE. [Suspect]
     Active Substance: TEMOZOLOMIDE
     Dosage: 200 MG, QD, FOR CYCLE 1
     Route: 048
     Dates: start: 20130925, end: 20130929
  26. ORAMORPH [Concomitant]
     Active Substance: MORPHINE SULFATE
     Dosage: UNK
     Dates: start: 201306, end: 201307
  27. ACETAMINOPHEN. [Concomitant]
     Active Substance: ACETAMINOPHEN
     Dosage: UNK
     Dates: start: 201306, end: 20130711

REACTIONS (7)
  - Constipation [Recovered/Resolved]
  - Platelet count decreased [Recovered/Resolved]
  - Gastrooesophageal reflux disease [Recovered/Resolved]
  - Vomiting [Recovered/Resolved]
  - Nausea [Recovered/Resolved]
  - Disease progression [Fatal]
  - Pyrexia [Recovered/Resolved]

NARRATIVE: CASE EVENT DATE: 20130718
